FAERS Safety Report 7950903-6 (Version None)
Quarter: 2011Q4

REPORT INFORMATION
  Report Type: 
  Country: None (occurrence: None)
  Receive Date: 20111201
  Receipt Date: 20111122
  Transmission Date: 20120403
  Serious: No
  Sender: FDA-Public Use
  Company Number: US-BIOGENIDEC-2011BI009894

PATIENT
  Sex: Female

DRUGS (1)
  1. TYSABRI [Suspect]
     Indication: MULTIPLE SCLEROSIS
     Route: 042
     Dates: start: 20090202

REACTIONS (6)
  - FALL [None]
  - FATIGUE [None]
  - MUSCULOSKELETAL STIFFNESS [None]
  - BALANCE DISORDER [None]
  - MUSCULAR WEAKNESS [None]
  - CONTUSION [None]
